FAERS Safety Report 19836643 (Version 1)
Quarter: 2021Q3

REPORT INFORMATION
  Report Type: Spontaneous
  Country: US (occurrence: US)
  Receive Date: 20210916
  Receipt Date: 20210916
  Transmission Date: 20211014
  Serious: Yes (Other)
  Sender: FDA-Public Use
  Company Number: US-HIKMA PHARMACEUTICALS USA INC.-US-H14001-21-03991

PATIENT
  Age: 12 Year
  Sex: Male

DRUGS (2)
  1. METHOTREXATE. [Suspect]
     Active Substance: METHOTREXATE
     Indication: ANTERIOR CHAMBER DISORDER
     Dosage: 400 MCG IN 0.1 ML, SINGLE DOSE
  2. METHOTREXATE. [Suspect]
     Active Substance: METHOTREXATE
     Indication: KERATIC PRECIPITATES

REACTIONS (2)
  - Condition aggravated [Recovered/Resolved]
  - Tissue infiltration [Recovered/Resolved]
